FAERS Safety Report 5103702-7 (Version None)
Quarter: 2006Q3

REPORT INFORMATION
  Report Type: 
  Country: None (occurrence: None)
  Receive Date: 20060913
  Receipt Date: 20060801
  Transmission Date: 20061208
  Serious: Yes (Other)
  Sender: FDA-Public Use
  Company Number: 2006AP03602

PATIENT
  Age: 63 Year
  Sex: Female

DRUGS (3)
  1. NOLVADEX [Suspect]
     Indication: BREAST CANCER
     Route: 048
     Dates: start: 20050701, end: 20060101
  2. NOLVADEX [Suspect]
     Route: 048
     Dates: start: 20060727
  3. TASUOMIN [Suspect]
     Route: 048
     Dates: start: 20060112, end: 20060726

REACTIONS (1)
  - VITREOUS DETACHMENT [None]
